FAERS Safety Report 5060471-7 (Version None)
Quarter: 2006Q3

REPORT INFORMATION
  Report Type: 
  Country: None (occurrence: None)
  Receive Date: 20060720
  Receipt Date: 20060714
  Transmission Date: 20061208
  Serious: Yes (Hospitalization)
  Sender: FDA-Public Use
  Company Number: 2006-02940

PATIENT
  Age: 76 Year
  Sex: Male

DRUGS (3)
  1. DILACOR XR [Suspect]
     Indication: CARDIAC FAILURE
     Dosage: SEE IMAGE
     Route: 048
     Dates: start: 19940101, end: 19940101
  2. DILACOR XR [Suspect]
     Indication: CORONARY ARTERY STENOSIS
     Dosage: SEE IMAGE
     Route: 048
     Dates: start: 19940101, end: 19940101
  3. HEPARIN [Concomitant]

REACTIONS (1)
  - ILEUS PARALYTIC [None]
